FAERS Safety Report 22056592 (Version 1)
Quarter: 2023Q1

REPORT INFORMATION
  Report Type: Spontaneous
  Country: US (occurrence: US)
  Receive Date: 20230302
  Receipt Date: 20230302
  Transmission Date: 20230418
  Serious: No
  Sender: FDA-Public Use
  Company Number: US-NOVOPROD-1002642

PATIENT
  Age: 43 Year
  Sex: Male

DRUGS (1)
  1. VICTOZA [Suspect]
     Active Substance: LIRAGLUTIDE
     Indication: Product used for unknown indication
     Dosage: 0.6 MG, QOD
     Route: 058
     Dates: start: 202201

REACTIONS (4)
  - Weight decreased [Unknown]
  - Decreased appetite [Recovering/Resolving]
  - Off label use [Unknown]
  - Product use issue [Unknown]
